FAERS Safety Report 8708574 (Version 3)
Quarter: 2012Q4

REPORT INFORMATION
  Report Type: 
  Country: US (occurrence: US)
  Receive Date: 20120806
  Receipt Date: 20120906
  Transmission Date: 20130627
  Serious: Yes (Hospitalization, Other)
  Sender: FDA-Public Use
  Company Number: US-SANOFI-AVENTIS-2012SA054108

PATIENT
  Age: 85 Year
  Sex: Female
  Weight: 57.72 kg

DRUGS (8)
  1. MULTAQ [Suspect]
     Indication: ATRIAL FIBRILLATION
     Route: 048
     Dates: start: 20111202, end: 20120827
  2. TOPROL XL [Suspect]
     Indication: BLOOD PRESSURE HIGH
     Route: 048
     Dates: start: 2008
  3. PREDNISONE [Concomitant]
  4. OTHER RESPIRATORY SYSTEM PRODUCTS [Concomitant]
  5. OMEPRAZOLE [Concomitant]
     Indication: GASTRIC DISORDER
  6. FLONASE [Concomitant]
     Indication: SINUS DISORDER
     Dosage: 2 sprays
  7. BUDESONIDE/FORMOTEROL [Concomitant]
     Indication: CHRONIC OBSTRUCTIVE PULMONARY DISEASE
     Dosage: 160/45
     Route: 055
  8. XARELTO [Concomitant]
     Indication: THROMBOSIS PROPHYLAXIS

REACTIONS (3)
  - Hypotension [Recovered/Resolved]
  - Atrial fibrillation [Unknown]
  - Dizziness [Unknown]
